FAERS Safety Report 6402258-6 (Version None)
Quarter: 2009Q4

REPORT INFORMATION
  Report Type: 
  Country: None (occurrence: None)
  Receive Date: 20091015
  Receipt Date: 20091002
  Transmission Date: 20100525
  Serious: Yes (Other)
  Sender: FDA-Public Use
  Company Number: PHEH2007US14770

PATIENT
  Sex: Male
  Weight: 74.376 kg

DRUGS (15)
  1. AREDIA [Suspect]
     Indication: OSTEOPOROSIS
     Dosage: 120MG MONTHLY
     Route: 042
     Dates: start: 19990101
  2. ZOMETA [Suspect]
     Indication: OSTEOPOROSIS
     Dosage: EVERY 3 WEEKS
     Dates: start: 20020215
  3. LUPRON [Suspect]
     Indication: PROSTATE CANCER
     Dosage: 7.5 MG, UNK
     Dates: start: 19970422
  4. THALIDOMIDE [Concomitant]
     Indication: PROSTATE CANCER
     Dosage: 50MG DAILY
     Dates: start: 20001218, end: 20010201
  5. LIPITOR [Concomitant]
     Dosage: 10MG QOD
  6. CELEBREX [Concomitant]
  7. PROSCAR [Concomitant]
     Indication: PROSTATE CANCER
     Dosage: 5 MG, QD
  8. CARDURA                                 /IRE/ [Concomitant]
     Dosage: 4MG QD
  9. FOSAMAX [Concomitant]
  10. ASPIRIN [Concomitant]
     Dosage: BABY ASA QD
  11. DECADRON                                /CAN/ [Concomitant]
     Dosage: 20MG MONTHLY
  12. CHEMOTHERAPEUTICS NOS [Concomitant]
  13. TAXOTERE [Concomitant]
  14. CARBOPLATIN [Concomitant]
  15. VIOXX [Concomitant]

REACTIONS (83)
  - ABDOMINAL HERNIA [None]
  - ABDOMINAL PAIN [None]
  - ABDOMINAL PAIN UPPER [None]
  - ANAEMIA [None]
  - ARTHROPATHY [None]
  - ATELECTASIS [None]
  - BACK PAIN [None]
  - BACTERIAL INFECTION [None]
  - BEDRIDDEN [None]
  - BLOOD PARATHYROID HORMONE INCREASED [None]
  - BONE DEBRIDEMENT [None]
  - BONE DISORDER [None]
  - BONE LESION [None]
  - BONE PAIN [None]
  - BONE SCAN ABNORMAL [None]
  - CEREBROVASCULAR ACCIDENT [None]
  - CHOLANGIOGRAM [None]
  - CHOLECYSTECTOMY [None]
  - CHOLECYSTITIS [None]
  - CHOLELITHIASIS [None]
  - CHRONIC OBSTRUCTIVE PULMONARY DISEASE [None]
  - CHRONIC SINUSITIS [None]
  - COLONIC POLYP [None]
  - CONSTIPATION [None]
  - CORONARY ARTERIAL STENT INSERTION [None]
  - CYST [None]
  - CYSTITIS [None]
  - DEPRESSION [None]
  - DIVERTICULUM [None]
  - DRUG HYPERSENSITIVITY [None]
  - DYSURIA [None]
  - EMPHYSEMA [None]
  - EPISTAXIS [None]
  - FALL [None]
  - FISTULA [None]
  - GASTRIC DISORDER [None]
  - GINGIVAL DISORDER [None]
  - GOITRE [None]
  - GYNAECOMASTIA [None]
  - HAEMOPTYSIS [None]
  - HEADACHE [None]
  - HYPERPARATHYROIDISM [None]
  - HYPERTENSION [None]
  - HYPOAESTHESIA ORAL [None]
  - HYPOTENSION [None]
  - INFECTION [None]
  - INTERVERTEBRAL DISC DEGENERATION [None]
  - IRRITABLE BOWEL SYNDROME [None]
  - JAW DISORDER [None]
  - JAW FRACTURE [None]
  - JAW OPERATION [None]
  - LUNG DISORDER [None]
  - MANIA [None]
  - MELANOCYTIC NAEVUS [None]
  - MYOCARDIAL INFARCTION [None]
  - NAUSEA [None]
  - NEPHROLITHIASIS [None]
  - OCCULT BLOOD POSITIVE [None]
  - ORAL DISCHARGE [None]
  - OROPHARYNGEAL PAIN [None]
  - OSTEONECROSIS [None]
  - OSTEOPENIA [None]
  - PAIN [None]
  - PAIN IN EXTREMITY [None]
  - PARATHYROID TUMOUR BENIGN [None]
  - PENILE PROSTHESIS INSERTION [None]
  - POSTNASAL DRIP [None]
  - PULMONARY GRANULOMA [None]
  - RADIOTHERAPY [None]
  - RECTAL HAEMORRHAGE [None]
  - RENAL CYST [None]
  - RENAL FAILURE [None]
  - RETINAL ISCHAEMIA [None]
  - RETINAL PIGMENTATION [None]
  - RIB FRACTURE [None]
  - SINUSITIS [None]
  - SLEEP APNOEA SYNDROME [None]
  - SPINAL OSTEOARTHRITIS [None]
  - SWELLING FACE [None]
  - THYROID CANCER [None]
  - THYROIDECTOMY [None]
  - TOOTH EXTRACTION [None]
  - WEIGHT DECREASED [None]
